FAERS Safety Report 4487960-8 (Version None)
Quarter: 2004Q4

REPORT INFORMATION
  Report Type: 
  Country: None (occurrence: None)
  Receive Date: 20041028
  Receipt Date: 20041020
  Transmission Date: 20050328
  Serious: Yes (Life-Threatening, Hospitalization)
  Sender: FDA-Public Use
  Company Number: SG-MERCK-0410SGP00008

PATIENT
  Age: 52 Year
  Sex: Male

DRUGS (2)
  1. VIOXX [Suspect]
     Indication: SPONDYLOSIS
     Route: 048
     Dates: start: 20030101, end: 20030101
  2. ZESTRIL [Concomitant]
     Route: 048
     Dates: end: 20031101

REACTIONS (2)
  - MYOCARDIAL INFARCTION [None]
  - RENAL IMPAIRMENT [None]
